FAERS Safety Report 21517798 (Version 2)
Quarter: 2022Q4

REPORT INFORMATION
  Report Type: Other
  Country: SV (occurrence: SV)
  Receive Date: 20221028
  Receipt Date: 20221212
  Transmission Date: 20230113
  Serious: No
  Sender: FDA-Public Use
  Company Number: SV-TOLMAR, INC.-22SV037092

PATIENT
  Age: 80 Year
  Sex: Male

DRUGS (1)
  1. ELIGARD [Suspect]
     Active Substance: LEUPROLIDE ACETATE
     Indication: Prostate cancer
     Dosage: 45 MILLIGRAM, Q 6 MONTH
     Route: 058
     Dates: start: 20220922

REACTIONS (2)
  - Application site hypersensitivity [Recovering/Resolving]
  - Injection site pruritus [Recovered/Resolved]

NARRATIVE: CASE EVENT DATE: 20221012
